FAERS Safety Report 4995233-X (Version None)
Quarter: 2006Q2

REPORT INFORMATION
  Report Type: 
  Country: None (occurrence: None)
  Receive Date: 20060508
  Receipt Date: 20050909
  Transmission Date: 20061013
  Serious: Yes (Hospitalization)
  Sender: FDA-Public Use
  Company Number: US-MERCK-0509USA01180

PATIENT
  Age: 73 Year
  Sex: Male
  Weight: 79 kg

DRUGS (2)
  1. VIOXX [Suspect]
     Indication: ARTHRALGIA
     Route: 048
     Dates: start: 19990101, end: 20040101
  2. ASPIRIN [Concomitant]
     Route: 048

REACTIONS (14)
  - ANAEMIA [None]
  - ANGINA PECTORIS [None]
  - ARTERIOSCLEROSIS [None]
  - BUNDLE BRANCH BLOCK RIGHT [None]
  - CARDIAC DISORDER [None]
  - CHEST DISCOMFORT [None]
  - CORONARY ARTERY OCCLUSION [None]
  - DISEASE PROGRESSION [None]
  - HIATUS HERNIA [None]
  - HYPERLIPIDAEMIA [None]
  - LIMB DISCOMFORT [None]
  - MICROANGIOPATHY [None]
  - MYOCARDIAL INFARCTION [None]
  - NON-CARDIAC CHEST PAIN [None]
